FAERS Safety Report 6574661-5 (Version None)
Quarter: 2010Q1

REPORT INFORMATION
  Report Type: 
  Country: None (occurrence: None)
  Receive Date: 20100209
  Receipt Date: 20100127
  Transmission Date: 20100710
  Serious: Yes (Hospitalization)
  Sender: FDA-Public Use
  Company Number: FR-ELI_LILLY_AND_COMPANY-FR200912002163

PATIENT
  Sex: Male
  Weight: 80 kg

DRUGS (2)
  1. TADALAFIL [Suspect]
     Indication: BENIGN PROSTATIC HYPERPLASIA
     Dosage: 2.5 MG, DAILY (1/D)
     Route: 048
     Dates: start: 20091029, end: 20091125
  2. DOLIPRANE [Concomitant]
     Indication: PYREXIA
     Dates: start: 20091203

REACTIONS (1)
  - PROSTATITIS [None]
